FAERS Safety Report 20934764 (Version 3)
Quarter: 2022Q3

REPORT INFORMATION
  Report Type: Report from Study
  Country: CN (occurrence: CN)
  Receive Date: 20220608
  Receipt Date: 20220909
  Transmission Date: 20221027
  Serious: Yes (Hospitalization, Other)
  Sender: FDA-Public Use
  Company Number: CN-TAKEDA-2022TUS019869

PATIENT
  Age: 23 Year
  Sex: Male
  Weight: 60 kg

DRUGS (16)
  1. BRENTUXIMAB VEDOTIN [Suspect]
     Active Substance: BRENTUXIMAB VEDOTIN
     Indication: Diffuse large B-cell lymphoma
     Dosage: 100 MILLIGRAM, Q3WEEKS
     Route: 042
     Dates: start: 20220207
  2. PANTOPRAZOLE SODIUM [Suspect]
     Active Substance: PANTOPRAZOLE SODIUM
     Indication: Gastrointestinal disorder prophylaxis
     Dosage: 40 MILLIGRAM, QD
     Route: 042
     Dates: start: 20220206, end: 20220208
  3. PANTOPRAZOLE SODIUM [Suspect]
     Active Substance: PANTOPRAZOLE SODIUM
     Indication: Gastrointestinal haemorrhage
     Dosage: 40 MILLIGRAM, BID
     Route: 042
     Dates: start: 20220208, end: 20220209
  4. ALBUMIN HUMAN [Suspect]
     Active Substance: ALBUMIN HUMAN
     Indication: Haemorrhage
     Dosage: 10 MILLIGRAM, QD
     Route: 042
     Dates: start: 20220206, end: 20220214
  5. ALBUMIN HUMAN [Suspect]
     Active Substance: ALBUMIN HUMAN
     Indication: Nutritional supplementation
  6. INDOMETHACIN [Suspect]
     Active Substance: INDOMETHACIN
     Indication: Pyrexia
     Dosage: 0.05 GRAM, QD
     Route: 054
     Dates: start: 20220207, end: 20220207
  7. INDOMETHACIN [Suspect]
     Active Substance: INDOMETHACIN
     Dosage: 0.05 GRAM, QD
     Route: 054
     Dates: start: 20220211, end: 20220211
  8. OXYCODONE HYDROCHLORIDE [Suspect]
     Active Substance: OXYCODONE HYDROCHLORIDE
     Indication: Abdominal pain
     Dosage: 10 MILLIGRAM, Q12H
     Route: 048
     Dates: start: 20220206, end: 20220218
  9. GLYCERIN\LECITHIN\MEDIUM-CHAIN TRIGLYCERIDES\SOYBEAN OIL [Suspect]
     Active Substance: GLYCERIN\LECITHIN\MEDIUM-CHAIN TRIGLYCERIDES\SOYBEAN OIL
     Indication: Nutritional supplementation
     Dosage: 250 MILLILITER, QD
     Route: 042
     Dates: start: 20220206, end: 20220215
  10. MEROPENEM [Suspect]
     Active Substance: MEROPENEM
     Indication: Gastrointestinal infection
     Dosage: 1 GRAM, QD
     Route: 042
     Dates: start: 20220209, end: 20220216
  11. LENALIDOMIDE [Suspect]
     Active Substance: LENALIDOMIDE
     Indication: Lymphoma
     Dosage: 25 MILLIGRAM, QD
     Route: 048
     Dates: start: 20220207, end: 20220220
  12. LENALIDOMIDE [Suspect]
     Active Substance: LENALIDOMIDE
     Dosage: 25 MILLIGRAM, QD
     Route: 048
     Dates: start: 20220226, end: 20220313
  13. FUROSEMIDE [Concomitant]
     Active Substance: FUROSEMIDE
     Indication: Polyuria
     Dosage: 2 MILLILITER, QD
     Route: 042
     Dates: start: 20220206, end: 20220211
  14. Compound Amino Acid Capsules (9-5) [Concomitant]
     Indication: Nutritional supplementation
     Dosage: 250 MILLILITER, QD
     Route: 042
     Dates: start: 20220206, end: 20220215
  15. PANTOPRAZOLE SODIUM [Concomitant]
     Active Substance: PANTOPRAZOLE SODIUM
     Indication: Gastritis prophylaxis
     Dosage: 40 MILLIGRAM, QD
     Route: 042
     Dates: start: 20220206, end: 20220208
  16. PIPERACILLIN AND TAZOBACTAM [Concomitant]
     Active Substance: PIPERACILLIN SODIUM\TAZOBACTAM SODIUM
     Indication: Gastrointestinal infection
     Dosage: 4.5 GRAM, Q8HR
     Route: 042
     Dates: start: 20220207, end: 20220209

REACTIONS (7)
  - Gastrointestinal infection [Recovered/Resolved]
  - Gastrointestinal haemorrhage [Recovered/Resolved]
  - Abdominal pain [Recovered/Resolved]
  - Hypoproteinaemia [Recovering/Resolving]
  - Electrolyte imbalance [Recovered/Resolved]
  - Pyrexia [Recovered/Resolved]
  - Off label use [Unknown]

NARRATIVE: CASE EVENT DATE: 20220207
